FAERS Safety Report 4956177-2 (Version None)
Quarter: 2006Q1

REPORT INFORMATION
  Report Type: 
  Country: None (occurrence: None)
  Receive Date: 20060322
  Receipt Date: 20060310
  Transmission Date: 20060701
  Serious: Yes (Other)
  Sender: FDA-Public Use
  Company Number: 2006035178

PATIENT
  Age: 87 Year
  Sex: Female
  Weight: 74.8435 kg

DRUGS (7)
  1. LIPITOR [Suspect]
     Indication: ILL-DEFINED DISORDER
     Dosage: 10 MG (10 MG, 1 IN 1 D), ORAL
     Route: 048
     Dates: start: 20040101, end: 20060216
  2. GLYBURIDE [Concomitant]
  3. MIACALCIN [Concomitant]
  4. NIFEDICAL (NIFEDIPINE) [Concomitant]
  5. LEVOTHYROXINE SODIUM [Concomitant]
  6. TRIAMTERENE (TRIAMTERENE) [Concomitant]
  7. PRAZOSIN GITS [Concomitant]

REACTIONS (4)
  - ASTHENIA [None]
  - DIFFICULTY IN WALKING [None]
  - FALL [None]
  - JOINT INJURY [None]
